FAERS Safety Report 17823659 (Version 2)
Quarter: 2020Q2

REPORT INFORMATION
  Report Type: Spontaneous
  Country: US (occurrence: US)
  Receive Date: 20200526
  Receipt Date: 20200529
  Transmission Date: 20200714
  Serious: No
  Sender: FDA-Public Use
  Company Number: US-PFIZER INC-2020206441

PATIENT
  Age: 58 Year
  Sex: Female
  Weight: 58.97 kg

DRUGS (1)
  1. CHANTIX [Suspect]
     Active Substance: VARENICLINE TARTRATE
     Indication: SMOKING CESSATION THERAPY
     Dosage: 0.5 MG [1 PILL FOR SO MANY DAYS]
     Dates: start: 202004

REACTIONS (12)
  - Panic disorder [Unknown]
  - Drug ineffective [Unknown]
  - Confusional state [Unknown]
  - Decreased activity [Unknown]
  - Nausea [Unknown]
  - Agitation [Unknown]
  - Decreased appetite [Unknown]
  - Depression [Unknown]
  - Sleep disorder [Unknown]
  - Somnolence [Unknown]
  - Irritability [Unknown]
  - Anxiety [Unknown]

NARRATIVE: CASE EVENT DATE: 202005
